FAERS Safety Report 7800525-2 (Version None)
Quarter: 2011Q4

REPORT INFORMATION
  Report Type: 
  Country: None (occurrence: None)
  Receive Date: 20111006
  Receipt Date: 20110930
  Transmission Date: 20120403
  Serious: Yes (Other)
  Sender: FDA-Public Use
  Company Number: US-ABBOTT-11P-163-0841481-00

PATIENT
  Sex: Female
  Weight: 81.72 kg

DRUGS (53)
  1. HUMIRA [Suspect]
  2. CALCIUM CARBONATE [Concomitant]
     Indication: PRODUCT USED FOR UNKNOWN INDICATION
     Dosage: DAILY
     Dates: end: 20041101
  3. BONIVA [Concomitant]
     Indication: PRODUCT USED FOR UNKNOWN INDICATION
     Dates: start: 20060608, end: 20060801
  4. EFFEXOR XR [Concomitant]
     Indication: PRODUCT USED FOR UNKNOWN INDICATION
     Dates: start: 20070101, end: 20080801
  5. HYDROCODONE BITARTRATE [Concomitant]
     Indication: PRODUCT USED FOR UNKNOWN INDICATION
     Dosage: 10/650MG FOUR TIMES DAILY
     Route: 048
  6. DIM [Concomitant]
     Indication: HOT FLUSH
     Dosage: HERBAL SUPPLEMENT
  7. METHOTREXATE [Concomitant]
     Indication: PRODUCT USED FOR UNKNOWN INDICATION
     Dosage: EVERY MONDAY
     Dates: start: 20061001
  8. WELLBUTRIN XL [Concomitant]
     Dates: start: 20080801, end: 20090101
  9. CIALIS [Concomitant]
     Indication: PRODUCT USED FOR UNKNOWN INDICATION
     Dosage: 20MG, 1/2 ONCE DAILY AS REQUIRED
     Dates: start: 20070301, end: 20071101
  10. PLAQUENIL [Concomitant]
     Indication: PRODUCT USED FOR UNKNOWN INDICATION
     Dates: start: 20100101
  11. DIFLUCAN [Concomitant]
     Indication: PRODUCT USED FOR UNKNOWN INDICATION
     Dosage: ONCE WEEKLY X 3 AS REQUIRED
     Dates: start: 20090101
  12. VITAMIN B-12 [Concomitant]
     Dosage: ONCE DAILY AS REQUIRED
     Route: 060
     Dates: end: 20050101
  13. VITAMIN B-12 [Concomitant]
     Route: 030
     Dates: start: 20060101
  14. TOPROL-XL [Concomitant]
     Indication: PRODUCT USED FOR UNKNOWN INDICATION
     Route: 048
     Dates: start: 20090501
  15. ALLEGRA [Concomitant]
     Indication: PRODUCT USED FOR UNKNOWN INDICATION
     Dosage: DAILY
     Route: 048
  16. FOSAMAX [Concomitant]
     Indication: PRODUCT USED FOR UNKNOWN INDICATION
     Route: 048
     Dates: start: 20051001, end: 20060601
  17. PREMARIN [Concomitant]
     Indication: PRODUCT USED FOR UNKNOWN INDICATION
     Dates: end: 20090501
  18. WELLBUTRIN XL [Concomitant]
     Indication: PRODUCT USED FOR UNKNOWN INDICATION
     Dates: start: 20061001, end: 20070101
  19. PREMARIN [Concomitant]
     Indication: PRODUCT USED FOR UNKNOWN INDICATION
     Dosage: 0.625 GTT ON MTF
     Dates: start: 20060401, end: 20090501
  20. AZMACORT [Concomitant]
     Indication: PRODUCT USED FOR UNKNOWN INDICATION
     Dosage: MDI 2 PUFFS QD
     Dates: start: 20070201, end: 20100101
  21. VIT D [Concomitant]
     Indication: PRODUCT USED FOR UNKNOWN INDICATION
     Dosage: SL ONCE DAILY AS REQUIRED
     Dates: end: 20110101
  22. HUMIRA [Suspect]
     Indication: RHEUMATOID ARTHRITIS
     Route: 058
     Dates: start: 20070101, end: 20071101
  23. RITUXAN [Suspect]
     Indication: RHEUMATOID ARTHRITIS
     Dates: start: 20070801, end: 20070801
  24. FOSAMAX [Concomitant]
     Dates: start: 20110701
  25. KLONOPIN [Concomitant]
     Indication: PRODUCT USED FOR UNKNOWN INDICATION
     Dosage: AT BEDTIME
     Dates: start: 20061201
  26. METHADONE HCL [Concomitant]
     Indication: PRODUCT USED FOR UNKNOWN INDICATION
     Route: 048
     Dates: start: 20100701
  27. MULTI-VITAMIN [Concomitant]
     Indication: PRODUCT USED FOR UNKNOWN INDICATION
     Dosage: DAILY
     Route: 048
  28. FOLIC ACID [Concomitant]
     Indication: PRODUCT USED FOR UNKNOWN INDICATION
     Dates: start: 20061001
  29. ACIDOPHILUS [Concomitant]
     Indication: PRODUCT USED FOR UNKNOWN INDICATION
     Dosage: QID AS REQUIRED
     Dates: start: 20040801, end: 20110101
  30. EPINEPHRINE [Suspect]
     Indication: ADVERSE DRUG REACTION
     Dates: start: 20070801, end: 20070801
  31. PRENATAL VITAMINS [Concomitant]
     Indication: PRODUCT USED FOR UNKNOWN INDICATION
  32. SAVELLA [Concomitant]
     Indication: PRODUCT USED FOR UNKNOWN INDICATION
     Route: 048
     Dates: start: 20100701
  33. FLORINEF [Concomitant]
     Indication: PRODUCT USED FOR UNKNOWN INDICATION
     Route: 048
     Dates: start: 20050801
  34. PREDNISONE [Concomitant]
     Indication: PRODUCT USED FOR UNKNOWN INDICATION
     Route: 048
  35. FLU [Concomitant]
     Indication: IMMUNISATION
     Dosage: IMMUNIZATION
     Dates: start: 20081001
  36. ENBREL [Concomitant]
     Indication: PRODUCT USED FOR UNKNOWN INDICATION
     Route: 058
     Dates: start: 20061001, end: 20070101
  37. QUALAQUIN [Concomitant]
     Indication: PRODUCT USED FOR UNKNOWN INDICATION
     Dosage: AT BEDTIME AS REQUIRED
     Dates: start: 20070701
  38. OMEPRAZOLE [Concomitant]
     Indication: PRODUCT USED FOR UNKNOWN INDICATION
     Dates: start: 20080801
  39. PNEUMOVAX 23 [Concomitant]
     Indication: IMMUNISATION
     Dates: start: 20100701
  40. FOLIC ACID [Concomitant]
     Indication: PRODUCT USED FOR UNKNOWN INDICATION
  41. PRILOSEC [Concomitant]
     Indication: PRODUCT USED FOR UNKNOWN INDICATION
     Route: 048
  42. ASPIRIN [Concomitant]
     Indication: PRODUCT USED FOR UNKNOWN INDICATION
     Dosage: DAILY
     Route: 048
  43. PREVACID [Concomitant]
     Indication: PRODUCT USED FOR UNKNOWN INDICATION
     Dates: end: 20080801
  44. LORTAB [Concomitant]
     Indication: PRODUCT USED FOR UNKNOWN INDICATION
     Dosage: 10/650MG 4 TIMES DAILY AS REQUIRED
  45. SINGULAIR [Concomitant]
     Indication: PRODUCT USED FOR UNKNOWN INDICATION
     Dates: start: 20040801, end: 20050101
  46. CYMBALTA [Concomitant]
     Indication: PRODUCT USED FOR UNKNOWN INDICATION
     Dates: start: 20090101, end: 20100701
  47. CYMBALTA [Concomitant]
  48. MENINGOVAX [Concomitant]
     Indication: PRODUCT USED FOR UNKNOWN INDICATION
     Dosage: IMMUNIZATION
  49. VITAMIN B-12 [Concomitant]
     Indication: PRODUCT USED FOR UNKNOWN INDICATION
     Dosage: SHOT MONTHLY
     Dates: start: 20060101
  50. LYRICA [Concomitant]
     Indication: PRODUCT USED FOR UNKNOWN INDICATION
     Dosage: AT BEDTIME
     Route: 048
     Dates: start: 20081001
  51. METHADONE HCL [Concomitant]
     Dosage: AT BEDTIME
     Dates: start: 20080101, end: 20081001
  52. PREMARIN [Concomitant]
     Dosage: IMMUNIZATION
     Dates: start: 20100701
  53. PROVIGIL [Concomitant]
     Indication: PRODUCT USED FOR UNKNOWN INDICATION
     Dates: start: 20060701, end: 20060801

REACTIONS (13)
  - UNEVALUABLE EVENT [None]
  - MYOCARDIAL INFARCTION [None]
  - OEDEMA PERIPHERAL [None]
  - HERPES ZOSTER [None]
  - ARTHRALGIA [None]
  - PAIN [None]
  - FIBROMYALGIA [None]
  - CATARACT [None]
  - JOINT SWELLING [None]
  - THYROID NEOPLASM [None]
  - IMMUNE SYSTEM DISORDER [None]
  - BIOPSY LIP [None]
  - DRUG INEFFECTIVE [None]
